FAERS Safety Report 5253696-9 (Version None)
Quarter: 2007Q1

REPORT INFORMATION
  Report Type: 
  Country: None (occurrence: None)
  Receive Date: 20070301
  Receipt Date: 20070221
  Transmission Date: 20070707
  Serious: Yes (Other)
  Sender: FDA-Public Use
  Company Number: PFIZER INC2006107621

PATIENT
  Sex: Female

DRUGS (11)
  1. ZOCOR [Suspect]
     Indication: HYPERCHOLESTEROLAEMIA
     Route: 048
     Dates: start: 20030814, end: 20041213
  2. OMEPRAZOLE [Concomitant]
     Route: 048
  3. RAMIPRIL [Concomitant]
     Route: 065
  4. ALBUTEROL SULFATE [Concomitant]
  5. DILTIAZEM HYDROCHLORIDE [Suspect]
     Indication: ARRHYTHMIA
     Route: 048
     Dates: start: 20030801
  6. PREGABALIN [Concomitant]
     Route: 048
  7. DILTIAZEM HYDROCHLORIDE [Suspect]
     Route: 048
  8. DILTIAZEM HYDROCHLORIDE [Suspect]
     Route: 048
  9. BUDESONIDE AND FORMOTEROL FUMARATE [Concomitant]
  10. CETIRIZINE HYDROCHLORIDE [Concomitant]
     Route: 065
  11. TRIMEPRAZINE TARTRATE [Concomitant]
     Route: 065

REACTIONS (8)
  - BALANCE DISORDER [None]
  - CONVULSION [None]
  - DRUG INTERACTION [None]
  - DRY MOUTH [None]
  - FATIGUE [None]
  - MUSCLE TWITCHING [None]
  - NAUSEA [None]
  - TINNITUS [None]
